FAERS Safety Report 16011848 (Version 5)
Quarter: 2019Q1

REPORT INFORMATION
  Report Type: Spontaneous
  Country: IT (occurrence: IT)
  Receive Date: 20190227
  Receipt Date: 20190329
  Transmission Date: 20190418
  Serious: Yes (Death)
  Sender: FDA-Public Use
  Company Number: IT-ROCHE-2270615

PATIENT
  Age: 45 Year
  Sex: Female

DRUGS (25)
  1. ITRACONAZOLE. [Suspect]
     Active Substance: ITRACONAZOLE
     Indication: PRODUCT USED FOR UNKNOWN INDICATION
     Route: 065
     Dates: start: 20021009
  2. FLUDROCORTISONE [Suspect]
     Active Substance: FLUDROCORTISONE
     Indication: PRODUCT USED FOR UNKNOWN INDICATION
     Route: 065
     Dates: start: 20020927
  3. CEFACLOR. [Suspect]
     Active Substance: CEFACLOR
     Indication: CYSTITIS
  4. FUROSEMIDE. [Suspect]
     Active Substance: FUROSEMIDE
     Dosage: UNK
     Route: 048
     Dates: start: 20021004
  5. CALCIUM GLUCONATE. [Suspect]
     Active Substance: CALCIUM GLUCONATE
     Indication: PRODUCT USED FOR UNKNOWN INDICATION
     Route: 065
     Dates: start: 20021009
  6. DIAZEPAM. [Suspect]
     Active Substance: DIAZEPAM
     Indication: HALLUCINATION
  7. HALOPERIDOL. [Suspect]
     Active Substance: HALOPERIDOL
     Indication: HALLUCINATION
     Route: 065
     Dates: start: 20021009
  8. FUROSEMIDE. [Suspect]
     Active Substance: FUROSEMIDE
     Indication: OLIGURIA
     Route: 042
     Dates: start: 20021027
  9. NYSTATIN. [Suspect]
     Active Substance: NYSTATIN
     Indication: ORAL CANDIDIASIS
     Dosage: MOST RECENT DSOE: 27/SEP/2002
     Route: 065
     Dates: start: 20020927
  10. OMEPRAZOLE. [Suspect]
     Active Substance: OMEPRAZOLE
     Indication: PRODUCT USED FOR UNKNOWN INDICATION
     Route: 048
     Dates: start: 20020927
  11. RABEPRAZOLE [Suspect]
     Active Substance: RABEPRAZOLE
     Indication: PRODUCT USED FOR UNKNOWN INDICATION
     Route: 065
     Dates: end: 20020927
  12. LEVOFLOXACIN. [Suspect]
     Active Substance: LEVOFLOXACIN
     Indication: PNEUMONIA
     Route: 048
     Dates: start: 20021004
  13. NYSTATIN. [Suspect]
     Active Substance: NYSTATIN
     Indication: CYSTITIS
  14. CALCIUM CARBONATE. [Suspect]
     Active Substance: CALCIUM CARBONATE
     Indication: PRODUCT USED FOR UNKNOWN INDICATION
     Dosage: MOST RECENT DSOE: 27/SEP/2002
     Route: 065
     Dates: start: 20020927
  15. CEFACLOR. [Suspect]
     Active Substance: CEFACLOR
     Indication: ORAL CANDIDIASIS
     Route: 065
     Dates: end: 20020927
  16. CEFACLOR. [Suspect]
     Active Substance: CEFACLOR
     Indication: CYSTITIS
  17. CANRENOATE DE POTASSIUM [Suspect]
     Active Substance: CANRENOATE POTASSIUM
     Indication: AGITATION
     Route: 048
     Dates: start: 20021004
  18. METOCLOPRAMIDE. [Suspect]
     Active Substance: METOCLOPRAMIDE
     Indication: PRODUCT USED FOR UNKNOWN INDICATION
     Route: 065
     Dates: end: 20020927
  19. PANTOPRAZOLE [Suspect]
     Active Substance: PANTOPRAZOLE
     Indication: PRODUCT USED FOR UNKNOWN INDICATION
     Route: 065
     Dates: start: 20021009
  20. CALCITRIOL. [Suspect]
     Active Substance: CALCITRIOL
     Indication: PRODUCT USED FOR UNKNOWN INDICATION
     Route: 065
     Dates: start: 20020927
  21. NYSTATIN. [Suspect]
     Active Substance: NYSTATIN
     Indication: CYSTITIS
  22. CORTISONE ACETATE. [Suspect]
     Active Substance: CORTISONE ACETATE
     Indication: PRODUCT USED FOR UNKNOWN INDICATION
     Route: 065
     Dates: start: 20020927
  23. AMOXICILLIN/CLAVULANATE [Suspect]
     Active Substance: AMOXICILLIN\CLAVULANATE POTASSIUM
     Indication: PNEUMONIA
     Route: 042
     Dates: start: 20021004
  24. DIAZEPAM. [Suspect]
     Active Substance: DIAZEPAM
     Indication: AGITATION
     Route: 065
     Dates: start: 20021009
  25. BETAMETHASONE. [Suspect]
     Active Substance: BETAMETHASONE
     Indication: PRODUCT USED FOR UNKNOWN INDICATION
     Route: 065
     Dates: end: 20020927

REACTIONS (2)
  - Toxic epidermal necrolysis [Fatal]
  - Septic shock [Fatal]

NARRATIVE: CASE EVENT DATE: 200210
